FAERS Safety Report 8234375-2 (Version None)
Quarter: 2012Q1

REPORT INFORMATION
  Report Type: 
  Country: None (occurrence: None)
  Receive Date: 20120326
  Receipt Date: 20120322
  Transmission Date: 20120608
  Serious: Yes (Other)
  Sender: FDA-Public Use
  Company Number: IT-BAYER-2012-028567

PATIENT
  Age: 31 Year
  Sex: Female

DRUGS (1)
  1. ACETAMINOPHEN [Suspect]
     Indication: PYREXIA
     Dosage: 1000 MG, ONCE
     Route: 048
     Dates: start: 20111205, end: 20111205

REACTIONS (1)
  - PRESYNCOPE [None]
